FAERS Safety Report 17474942 (Version 2)
Quarter: 2020Q1

REPORT INFORMATION
  Report Type: Spontaneous
  Country: FR (occurrence: FR)
  Receive Date: 20200228
  Receipt Date: 20200318
  Transmission Date: 20200409
  Serious: Yes (Death)
  Sender: FDA-Public Use
  Company Number: FR-PFIZER INC-2020083628

PATIENT
  Age: 29 Year
  Sex: Male
  Weight: 74 kg

DRUGS (5)
  1. MEDROL [Suspect]
     Active Substance: METHYLPREDNISOLONE
     Dosage: 1 DF, 1X/DAY
     Route: 048
     Dates: start: 20191116
  2. CABOMETYX [Suspect]
     Active Substance: CABOZANTINIB S-MALATE
     Indication: RENAL CANCER
     Dosage: 1 DF, 1X/DAY
     Route: 048
     Dates: start: 20191113, end: 20191201
  3. ESOMEPRAZOLE. [Concomitant]
     Active Substance: ESOMEPRAZOLE MAGNESIUM
     Dosage: 20 MG, 1X/DAY
     Route: 048
  4. DUROGESIC [Suspect]
     Active Substance: FENTANYL
     Indication: RENAL CANCER
     Dosage: 1 DF, 1X/DAY
     Route: 003
     Dates: start: 20191115
  5. VOGALENE [Concomitant]
     Active Substance: METOPIMAZINE
     Dosage: 3 DF, 1X/DAY
     Route: 048

REACTIONS (3)
  - Rash maculo-papular [Fatal]
  - Liver injury [Fatal]
  - Gastrointestinal obstruction [Fatal]

NARRATIVE: CASE EVENT DATE: 20191124
